FAERS Safety Report 5177192-2 (Version None)
Quarter: 2006Q4

REPORT INFORMATION
  Report Type: 
  Country: None (occurrence: None)
  Receive Date: 20061218
  Receipt Date: 20061207
  Transmission Date: 20070319
  Serious: Yes (Other)
  Sender: FDA-Public Use
  Company Number: KR-BRISTOL-MYERS SQUIBB COMPANY-13610373

PATIENT
  Age: 53 Year
  Sex: Male

DRUGS (3)
  1. CISPLATIN [Suspect]
     Indication: CHEMOTHERAPY
     Route: 042
  2. IFOSFAMIDE [Suspect]
     Indication: CHEMOTHERAPY
     Route: 042
  3. NAVELBINE [Suspect]
     Indication: CHEMOTHERAPY
     Route: 042

REACTIONS (2)
  - INJECTION SITE EXTRAVASATION [None]
  - INJECTION SITE INFLAMMATION [None]
